FAERS Safety Report 6663415-7 (Version None)
Quarter: 2010Q2

REPORT INFORMATION
  Report Type: 
  Country: None (occurrence: None)
  Receive Date: 20100401
  Receipt Date: 20091023
  Transmission Date: 20101027
  Serious: Yes (Hospitalization)
  Sender: FDA-Public Use
  Company Number: JP-BRISTOL-MYERS SQUIBB COMPANY-14834154

PATIENT
  Age: 70 Year
  Sex: Female

DRUGS (3)
  1. IRBETAN [Suspect]
     Indication: HYPERTENSION
     Route: 048
     Dates: start: 20091005, end: 20091012
  2. LIPITOR [Suspect]
     Indication: DYSLIPIDAEMIA
     Route: 048
  3. FAMOTIDINE [Concomitant]
     Indication: GASTRIC MUCOSAL LESION
     Route: 048

REACTIONS (2)
  - MYOPATHY [None]
  - PYREXIA [None]
